FAERS Safety Report 23060312 (Version 6)
Quarter: 2025Q4

REPORT INFORMATION
  Report Type: Report from Study
  Country: JP (occurrence: JP)
  Receive Date: 20231012
  Receipt Date: 20251208
  Transmission Date: 20260117
  Serious: Yes (Hospitalization, Other)
  Sender: ALEXION PHARMACEUTICALS
  Company Number: 2022A360241

PATIENT
  Age: 52 Year
  Sex: Female
  Weight: 39 kg

DRUGS (14)
  1. ANIFROLUMAB [Suspect]
     Active Substance: ANIFROLUMAB
     Indication: Systemic lupus erythematosus
     Dosage: 300 MILLIGRAM, Q4W
     Dates: start: 20221130, end: 20221130
  2. ANIFROLUMAB [Suspect]
     Active Substance: ANIFROLUMAB
     Dosage: 300 MILLIGRAM, Q4W
     Dates: start: 20230125, end: 20230322
  3. ANIFROLUMAB [Suspect]
     Active Substance: ANIFROLUMAB
     Dosage: 300 MILLIGRAM, Q4W
     Dates: start: 20230322, end: 20230531
  4. PREDONINE [Suspect]
     Active Substance: PREDNISOLONE
     Indication: Systemic lupus erythematosus
     Dosage: 9 MG
  5. PREDONINE [Suspect]
     Active Substance: PREDNISOLONE
     Dosage: 8 MG
     Dates: start: 20220706, end: 20220802
  6. PREDONINE [Suspect]
     Active Substance: PREDNISOLONE
     Dosage: 7 MG
     Dates: start: 20220803, end: 20220830
  7. PREDONINE [Suspect]
     Active Substance: PREDNISOLONE
     Dosage: 6 MG
     Dates: start: 20220831, end: 20220927
  8. PREDONINE [Suspect]
     Active Substance: PREDNISOLONE
     Dosage: 5 MG
  9. CALCIUM ASPARTATE [Concomitant]
     Active Substance: CALCIUM ASPARTATE
     Indication: Osteoporosis
     Dosage: 200 MILLIGRAM
  10. VONOPRAZAN FUMARATE [Concomitant]
     Active Substance: VONOPRAZAN FUMARATE
     Indication: Prophylaxis
     Dosage: 10 MILLIGRAM
  11. BERAPROST SODIUM [Concomitant]
     Active Substance: BERAPROST SODIUM
     Indication: Prophylaxis
     Dosage: 40 MILLIGRAM
  12. TRACLEER [Concomitant]
     Active Substance: BOSENTAN
     Indication: Prophylaxis
     Dosage: 40 MILLIGRAM
  13. CELECOXIB [Concomitant]
     Active Substance: CELECOXIB
     Indication: Prophylaxis
     Dosage: 400 MILLIGRAM
  14. ASPIRIN [Concomitant]
     Active Substance: ASPIRIN
     Indication: Prophylaxis
     Dosage: 100 MILLIGRAM

REACTIONS (5)
  - Hypoaesthesia [Not Recovered/Not Resolved]
  - Gait disturbance [Not Recovered/Not Resolved]
  - Hypothyroidism [Not Recovered/Not Resolved]
  - Herpes zoster [Recovered/Resolved]
  - COVID-19 [Recovered/Resolved]

NARRATIVE: CASE EVENT DATE: 20221022
